FAERS Safety Report 19450843 (Version 1)
Quarter: 2021Q2

REPORT INFORMATION
  Report Type: Spontaneous
  Country: US (occurrence: US)
  Receive Date: 20210622
  Receipt Date: 20210622
  Transmission Date: 20210717
  Serious: No
  Sender: FDA-Public Use
  Company Number: None

PATIENT
  Age: 74 Year
  Sex: Female
  Weight: 38.15 kg

DRUGS (1)
  1. CISPLATIN. [Suspect]
     Active Substance: CISPLATIN
     Dates: end: 20210426

REACTIONS (18)
  - Chills [None]
  - Urine abnormality [None]
  - Kidney infection [None]
  - Nausea [None]
  - Necrosis [None]
  - Refusal of treatment by patient [None]
  - Urethral discharge [None]
  - Sepsis [None]
  - Urinary tract infection [None]
  - Vaginal disorder [None]
  - Night sweats [None]
  - Vomiting [None]
  - Hypokalaemia [None]
  - Blood creatinine increased [None]
  - Urinary tract stoma complication [None]
  - White blood cell count increased [None]
  - Blood potassium decreased [None]
  - Pyrexia [None]

NARRATIVE: CASE EVENT DATE: 20210610
